FAERS Safety Report 10060571 (Version 3)
Quarter: 2014Q2

REPORT INFORMATION
  Report Type: Spontaneous
  Country: GB (occurrence: GB)
  Receive Date: 20140404
  Receipt Date: 20140422
  Transmission Date: 20141212
  Serious: Yes (Life-Threatening, Hospitalization)
  Sender: FDA-Public Use
  Company Number: PHHY2014GB039295

PATIENT
  Age: 78 Year
  Sex: Female

DRUGS (2)
  1. PENICILLIN VK/OSPEN/APSIN VK/STABILIN VK/VEEPEN [Suspect]
     Indication: CELLULITIS
     Dosage: 250 MG, BID
     Route: 048
     Dates: start: 201208, end: 20130619
  2. STEROIDS [Concomitant]

REACTIONS (8)
  - Feeling abnormal [Unknown]
  - Respiratory disorder [Unknown]
  - Pulmonary calcification [Unknown]
  - Lung disorder [Unknown]
  - Lymphoedema [Unknown]
  - Oxygen saturation decreased [Unknown]
  - Localised infection [Unknown]
  - Incorrect drug administration duration [Unknown]
